FAERS Safety Report 7331627-5 (Version None)
Quarter: 2011Q1

REPORT INFORMATION
  Report Type: 
  Country: None (occurrence: None)
  Receive Date: 20110228
  Receipt Date: 20110228
  Transmission Date: 20110831
  Serious: Yes (Life-Threatening)
  Sender: FDA-Public Use
  Company Number: None

PATIENT
  Sex: Male
  Weight: 91.6266 kg

DRUGS (3)
  1. MELOXICAM [Suspect]
     Indication: PAIN
     Dosage: 1 TABLET TWICE A DAY 60 TABLETS + 1 REFILL
     Dates: start: 20110121
  2. MELOXICAM [Suspect]
     Indication: PAIN
     Dosage: 1 TABLET TWICE A DAY 60 TABLETS + 1 REFILL
     Dates: start: 20110120
  3. MELOXICAM [Suspect]
     Indication: PAIN
     Dosage: 1 TABLET TWICE A DAY 60 TABLETS + 1 REFILL
     Dates: start: 20110122

REACTIONS (3)
  - ABDOMINAL PAIN UPPER [None]
  - GASTROINTESTINAL HAEMORRHAGE [None]
  - FAECES DISCOLOURED [None]
